FAERS Safety Report 20907977 (Version 7)
Quarter: 2024Q2

REPORT INFORMATION
  Report Type: Spontaneous
  Country: BR (occurrence: BR)
  Receive Date: 20220602
  Receipt Date: 20240526
  Transmission Date: 20240715
  Serious: Yes (Death, Hospitalization, Other)
  Sender: FDA-Public Use
  Company Number: BR-BRISTOL-MYERS SQUIBB COMPANY-2022-048875

PATIENT
  Age: 65 Year
  Sex: Male
  Weight: 87.15 kg

DRUGS (13)
  1. ABRAXANE [Suspect]
     Active Substance: PACLITAXEL
     Indication: Adenocarcinoma pancreas
     Dosage: 100 MG/M2, ON DAYS 1, 8 AND 15 OF THE CYCLE
     Route: 042
     Dates: start: 20220215, end: 20220329
  2. GEMZAR [Suspect]
     Active Substance: GEMCITABINE HYDROCHLORIDE
     Indication: Adenocarcinoma pancreas
     Dosage: 800 MG/M?
     Route: 042
     Dates: start: 20220215, end: 20220329
  3. PREGABALIN [Concomitant]
     Active Substance: PREGABALIN
     Route: 048
  4. PREGABALIN [Concomitant]
     Active Substance: PREGABALIN
     Indication: Neuropathy peripheral
  5. ALPRAZOLAM [Concomitant]
     Active Substance: ALPRAZOLAM
     Route: 048
  6. ALPRAZOLAM [Concomitant]
     Active Substance: ALPRAZOLAM
     Indication: Anxiety
  7. INSULIN DEGLUDEC [Concomitant]
     Active Substance: INSULIN DEGLUDEC
     Indication: Diabetes mellitus
     Route: 058
  8. PRADAXA [Concomitant]
     Active Substance: DABIGATRAN ETEXILATE MESYLATE
     Indication: Anticoagulant therapy
     Dosage: 1) ( 150 MILLIGRAM(S) )
     Route: 048
  9. PRADAXA [Concomitant]
     Active Substance: DABIGATRAN ETEXILATE MESYLATE
     Route: 048
  10. BENICAR [Concomitant]
     Active Substance: OLMESARTAN MEDOXOMIL
     Indication: Hypertension
     Route: 048
  11. BISOPROLOL FUMARATE [Concomitant]
     Active Substance: BISOPROLOL FUMARATE
     Indication: Hypertension
     Route: 048
  12. AMIODARONE HYDROCHLORIDE [Concomitant]
     Active Substance: AMIODARONE HYDROCHLORIDE
     Indication: Cardiac disorder
     Route: 048
  13. CYMBALTA [Concomitant]
     Active Substance: DULOXETINE HYDROCHLORIDE
     Indication: Neuropathy peripheral
     Route: 048

REACTIONS (12)
  - Malignant neoplasm progression [Fatal]
  - Peripheral sensory neuropathy [Not Recovered/Not Resolved]
  - Aspartate aminotransferase increased [Not Recovered/Not Resolved]
  - Alanine aminotransferase increased [Not Recovered/Not Resolved]
  - Blood alkaline phosphatase increased [Unknown]
  - Blood bilirubin increased [Unknown]
  - Platelet count decreased [Unknown]
  - Gamma-glutamyltransferase increased [Unknown]
  - Haemobilia [Fatal]
  - Pleural effusion [Fatal]
  - Ascites [Fatal]
  - Encephalopathy [Fatal]

NARRATIVE: CASE EVENT DATE: 20220201
